FAERS Safety Report 12488442 (Version 2)
Quarter: 2016Q3

REPORT INFORMATION
  Report Type: Spontaneous
  Country: AR (occurrence: AR)
  Receive Date: 20160622
  Receipt Date: 20160830
  Transmission Date: 20161109
  Serious: Yes (Other)
  Sender: FDA-Public Use
  Company Number: AR-BIOGEN-2016BI00251937

PATIENT
  Age: 36 Year
  Sex: Female

DRUGS (1)
  1. TYSABRI [Suspect]
     Active Substance: NATALIZUMAB
     Indication: RELAPSING-REMITTING MULTIPLE SCLEROSIS
     Dosage: INFUSED OVER 1 HOUR
     Route: 042

REACTIONS (5)
  - Hyperreflexia [Unknown]
  - Autoimmune hepatitis [Not Recovered/Not Resolved]
  - Hemianaesthesia [Unknown]
  - Hoffmann^s sign [Unknown]
  - Romberg test positive [Unknown]

NARRATIVE: CASE EVENT DATE: 201606
